FAERS Safety Report 6782752-9 (Version None)
Quarter: 2010Q2

REPORT INFORMATION
  Report Type: 
  Country: None (occurrence: None)
  Receive Date: 20100621
  Receipt Date: 20100608
  Transmission Date: 20101027
  Serious: Yes (Hospitalization)
  Sender: FDA-Public Use
  Company Number: US-ELI_LILLY_AND_COMPANY-US201003006868

PATIENT
  Sex: Female

DRUGS (16)
  1. FORTEO [Suspect]
     Indication: OSTEOPOROSIS
     Dosage: 20 UG, DAILY (1/D)
     Route: 065
  2. FORTEO [Suspect]
     Dosage: 20 UG, DAILY (1/D)
     Route: 065
     Dates: start: 20100316
  3. SYNVISC [Concomitant]
     Indication: JOINT INJURY
     Route: 014
  4. PREVACID [Concomitant]
     Dosage: 30 MG, 2/D
  5. SYNTHROID [Concomitant]
     Dosage: 125 UG, UNK
  6. LIOTHYRONINE SODIUM [Concomitant]
     Dosage: 5 UG, 2/D
  7. ARMODAFINIL [Concomitant]
     Dosage: 250 MG, DAILY (1/D)
  8. VITAMIN D [Concomitant]
     Dosage: 1000 IU, UNK
  9. ACIDOPHILUS [Concomitant]
  10. L-CARNITINE [Concomitant]
     Dosage: 500 MG, DAILY (1/D)
  11. CALCIUM CARBONATE [Concomitant]
     Dosage: 600 MG, UNK
  12. MELATONIN [Concomitant]
     Indication: SLEEP DISORDER
     Dosage: 5 MG, UNK
  13. CELEBREX [Concomitant]
  14. HYDROCODONE [Concomitant]
  15. COUMADIN [Concomitant]
     Dosage: 2.5 MG, DAILY (1/D)
  16. LEVAQUIN [Concomitant]

REACTIONS (3)
  - GAIT DISTURBANCE [None]
  - JOINT INJURY [None]
  - SCIATICA [None]
